FAERS Safety Report 10773249 (Version 1)
Quarter: 2015Q1

REPORT INFORMATION
  Report Type: Report from Study
  Country: US (occurrence: US)
  Receive Date: 20150208
  Receipt Date: 20150208
  Transmission Date: 20150721
  Serious: Yes (Other)
  Sender: FDA-Public Use
  Company Number: US-AMGEN-USASL2015010795

PATIENT
  Age: 53 Year
  Sex: Female
  Weight: 66.7 kg

DRUGS (23)
  1. PROCRIT [Suspect]
     Active Substance: ERYTHROPOIETIN
     Indication: PRODUCT USED FOR UNKNOWN INDICATION
     Dosage: 20,000 UNITS, EVERY OTHER DAY
     Route: 058
     Dates: start: 20150127
  2. OXYCONTIN [Concomitant]
     Active Substance: OXYCODONE HYDROCHLORIDE
     Dosage: 10 MG, Q12H
     Route: 048
     Dates: start: 20150128
  3. EPOGEN [Suspect]
     Active Substance: ERYTHROPOIETIN
     Indication: PRODUCT USED FOR UNKNOWN INDICATION
     Dosage: 20,000 UNITS, EVERY OTHER DAY
     Route: 058
     Dates: start: 20150127
  4. ROXICODONE [Concomitant]
     Active Substance: OXYCODONE HYDROCHLORIDE
     Dosage: 10 MG, Q4H PRN
     Route: 048
     Dates: start: 20150128
  5. HUMALOG [Concomitant]
     Active Substance: INSULIN LISPRO
     Dosage: 1-40 UNITS, Q6H, PRN
     Route: 058
     Dates: start: 20150128
  6. MAG-OX [Concomitant]
     Active Substance: MAGNESIUM OXIDE
     Dosage: 400 MG, Q12H
     Route: 048
     Dates: start: 20150128
  7. TYLENOL [Concomitant]
     Active Substance: ACETAMINOPHEN
     Dosage: 650 MG, Q6H, PRN
     Route: 048
     Dates: start: 20150126
  8. SENOKOT [Concomitant]
     Active Substance: SENNOSIDES
     Dosage: 8.6 MG, BID
     Route: 048
     Dates: start: 20150126
  9. MYCOSTATIN [Concomitant]
     Active Substance: NYSTATIN
     Dosage: UNK UNK, Q12H
     Route: 061
  10. FERROUS SULFATE [Concomitant]
     Active Substance: FERROUS SULFATE\FERROUS SULFATE, DRIED
     Dosage: 325 MG, TID
     Route: 048
     Dates: start: 20150129
  11. MIRALAX [Concomitant]
     Active Substance: POLYETHYLENE GLYCOL 3350
     Dosage: POWDER PACKET 1, DAILY
     Route: 048
     Dates: start: 20150128
  12. LOVENOX [Concomitant]
     Active Substance: ENOXAPARIN SODIUM
     Dosage: 40 MG, DAILY
     Route: 058
     Dates: start: 20150128
  13. AMBIEN [Concomitant]
     Active Substance: ZOLPIDEM TARTRATE
     Dosage: 5 MG, NIGHTLY PRN
     Route: 048
     Dates: start: 20150122
  14. COLACE [Concomitant]
     Active Substance: DOCUSATE SODIUM
     Dosage: 100 MG, BID
     Route: 048
     Dates: start: 20150128
  15. ZOFRAN                             /00955301/ [Concomitant]
     Active Substance: ONDANSETRON HYDROCHLORIDE
     Dosage: 4 MG, Q4H PRN
     Route: 042
     Dates: start: 20150118
  16. HUMALOG [Concomitant]
     Active Substance: INSULIN LISPRO
     Dosage: 5 UNIT, TID AC
     Route: 058
     Dates: start: 20150128
  17. MILK OF MAGNESIA [Concomitant]
     Active Substance: MAGNESIUM HYDROXIDE
     Dosage: 30 ML, NIGHTLY, AS NECESSARY
     Route: 048
  18. TYLENOL [Concomitant]
     Active Substance: ACETAMINOPHEN
     Dosage: 650 MG, Q6H, PRN
     Route: 048
     Dates: start: 20150124
  19. PEPCID [Concomitant]
     Active Substance: FAMOTIDINE
     Dosage: 20 MG, BID
     Route: 048
     Dates: start: 20150128
  20. DILAUDID [Concomitant]
     Active Substance: HYDROMORPHONE HYDROCHLORIDE
     Dosage: 4 MG, Q3H, PRN
     Route: 048
     Dates: start: 20150126
  21. DILAUDID [Concomitant]
     Active Substance: HYDROMORPHONE HYDROCHLORIDE
     Dosage: 0.5 MG, Q4H, PRN
     Route: 042
     Dates: start: 20150129
  22. ROXICODONE [Concomitant]
     Active Substance: OXYCODONE HYDROCHLORIDE
     Dosage: 5 MG, Q4H, PRN
     Route: 048
     Dates: start: 20150126
  23. LANTUS [Concomitant]
     Active Substance: INSULIN GLARGINE
     Dosage: 18 UNIT, NIGHTLY
     Route: 058
     Dates: start: 20150128

REACTIONS (6)
  - Cellulitis [Unknown]
  - Vulval cancer [Unknown]
  - Subcutaneous abscess [Unknown]
  - Anaemia [Unknown]
  - Diabetes mellitus [Unknown]
  - Pyrexia [Unknown]
